FAERS Safety Report 5792151-4 (Version None)
Quarter: 2008Q2

REPORT INFORMATION
  Report Type: 
  Country: None (occurrence: None)
  Receive Date: 20080626
  Receipt Date: 20080310
  Transmission Date: 20081010
  Serious: No
  Sender: FDA-Public Use
  Company Number: US-ASTRAZENECA-2008UW04807

PATIENT
  Age: 75 Year
  Sex: Female
  Weight: 77.1 kg

DRUGS (6)
  1. PULMICORT FLEXHALER [Suspect]
     Indication: ASTHMA
     Route: 055
     Dates: start: 20080301
  2. VERAPAMIL [Concomitant]
  3. SEREVENT [Concomitant]
  4. CALCIUM [Concomitant]
  5. VITAMINS [Concomitant]
  6. OXYBUTIN [Concomitant]

REACTIONS (2)
  - DYSPNOEA [None]
  - ORAL PAIN [None]
